FAERS Safety Report 8048356-5 (Version None)
Quarter: 2012Q1

REPORT INFORMATION
  Report Type: 
  Country: None (occurrence: None)
  Receive Date: 20120117
  Receipt Date: 20120110
  Transmission Date: 20120608
  Serious: No
  Sender: FDA-Public Use
  Company Number: US-PFIZER INC-2012008462

PATIENT
  Sex: Male
  Weight: 68.027 kg

DRUGS (1)
  1. VIAGRA [Suspect]
     Dosage: UNK

REACTIONS (3)
  - PENILE ERYTHEMA [None]
  - ERECTION INCREASED [None]
  - PENILE PAIN [None]
